FAERS Safety Report 25609297 (Version 1)
Quarter: 2025Q3

REPORT INFORMATION
  Report Type: Spontaneous
  Country: EU (occurrence: EU)
  Receive Date: 20250727
  Receipt Date: 20250727
  Transmission Date: 20251021
  Serious: Yes (Other)
  Sender: SANOFI AVENTIS
  Company Number: None

PATIENT
  Age: 63 Year
  Sex: Female

DRUGS (3)
  1. OXALIPLATIN [Suspect]
     Active Substance: OXALIPLATIN
     Indication: Colon cancer
     Dosage: UNK UNK, QOW
     Route: 042
     Dates: start: 20250317, end: 20250317
  2. FOLIC ACID [Suspect]
     Active Substance: FOLIC ACID
     Indication: Colon cancer
     Dosage: UNK UNK, QOW
     Route: 042
     Dates: start: 20250317, end: 20250317
  3. FLUOROURACIL [Suspect]
     Active Substance: FLUOROURACIL
     Indication: Colon cancer
     Dosage: UNK UNK, QOW
     Route: 042
     Dates: start: 20250317, end: 20250317

REACTIONS (1)
  - Hepatotoxicity [Recovered/Resolved]

NARRATIVE: CASE EVENT DATE: 20250331
